FAERS Safety Report 8186222-5 (Version None)
Quarter: 2012Q1

REPORT INFORMATION
  Report Type: 
  Country: None (occurrence: None)
  Receive Date: 20120306
  Receipt Date: 20120229
  Transmission Date: 20120608
  Serious: No
  Sender: FDA-Public Use
  Company Number: US-PFIZER INC-2012054832

PATIENT
  Sex: Female
  Weight: 70.295 kg

DRUGS (8)
  1. PANTOPRAZOLE [Suspect]
     Indication: GASTROOESOPHAGEAL REFLUX DISEASE
     Dosage: 40 MG, DAILY
  2. ZOLOFT [Concomitant]
     Indication: ANXIETY
     Dosage: 200 MG, DAILY
     Route: 048
  3. SINGULAIR [Concomitant]
     Indication: ASTHMA
     Dosage: UNK
  4. ZOLOFT [Concomitant]
     Indication: DEPRESSION
  5. ADVAIR DISKUS 100/50 [Concomitant]
     Indication: ASTHMA
     Dosage: UNK, AS NEEDED
  6. NALTREXONE [Suspect]
     Indication: DEPRESSION
     Dosage: UNK
  7. NALTREXONE [Suspect]
     Indication: ANXIETY
  8. SEROQUEL [Concomitant]
     Indication: ANXIETY
     Dosage: 25 MG, DAILY

REACTIONS (1)
  - HEADACHE [None]
